FAERS Safety Report 16975718 (Version 1)
Quarter: 2019Q4

REPORT INFORMATION
  Report Type: Spontaneous
  Country: RU (occurrence: GB)
  Receive Date: 20191030
  Receipt Date: 20191030
  Transmission Date: 20200122
  Serious: Yes (Death, Other)
  Sender: FDA-Public Use
  Company Number: RU-SA-2019SA299119

PATIENT
  Age: 17 Year
  Sex: Male

DRUGS (10)
  1. FLUDARABINE PHOSPHATE. [Suspect]
     Active Substance: FLUDARABINE PHOSPHATE
     Indication: IMMUNODEFICIENCY
  2. FLUDARABINE PHOSPHATE. [Suspect]
     Active Substance: FLUDARABINE PHOSPHATE
     Indication: CHOLANGITIS SCLEROSING
  3. ALEMTUZUMAB [Suspect]
     Active Substance: ALEMTUZUMAB
     Indication: BONE MARROW CONDITIONING REGIMEN
     Route: 041
  4. ALEMTUZUMAB [Suspect]
     Active Substance: ALEMTUZUMAB
     Indication: IMMUNODEFICIENCY
  5. ALEMTUZUMAB [Suspect]
     Active Substance: ALEMTUZUMAB
     Indication: CHOLANGITIS SCLEROSING
  6. ALKERAN [Suspect]
     Active Substance: MELPHALAN
     Indication: BONE MARROW CONDITIONING REGIMEN
  7. ALKERAN [Suspect]
     Active Substance: MELPHALAN
     Indication: CHOLANGITIS SCLEROSING
  8. CAMPATH [Suspect]
     Active Substance: ALEMTUZUMAB
     Indication: CHOLANGITIS SCLEROSING
  9. FLUDARABINE PHOSPHATE. [Suspect]
     Active Substance: FLUDARABINE PHOSPHATE
     Indication: BONE MARROW CONDITIONING REGIMEN
  10. ALKERAN [Suspect]
     Active Substance: MELPHALAN
     Indication: IMMUNODEFICIENCY

REACTIONS (3)
  - Off label use [Unknown]
  - Haemolysis [Fatal]
  - Encephalitis [Fatal]
